FAERS Safety Report 20838877 (Version 3)
Quarter: 2024Q4

REPORT INFORMATION
  Report Type: Report from Study
  Country: US (occurrence: US)
  Receive Date: 20220517
  Receipt Date: 20241016
  Transmission Date: 20250114
  Serious: No
  Sender: NOVARTIS
  Company Number: US-NOVARTISTESTPH-NVSC2022US113373

PATIENT
  Sex: Male

DRUGS (2)
  1. COSENTYX [Suspect]
     Active Substance: SECUKINUMAB
     Indication: Psoriasis
     Dosage: 300 MG, QW (ONCE A WEEK FOR 5 WEEKS THEN ONCE EVERY 4 WEEKS)
     Route: 058
  2. COSENTYX [Suspect]
     Active Substance: SECUKINUMAB
     Indication: Arthritis
     Dosage: UNK
     Route: 065

REACTIONS (3)
  - Fatigue [Unknown]
  - Pain [Unknown]
  - Drug ineffective for unapproved indication [Unknown]
